FAERS Safety Report 18989953 (Version 1)
Quarter: 2021Q1

REPORT INFORMATION
  Report Type: Spontaneous
  Country: US (occurrence: US)
  Receive Date: 20210310
  Receipt Date: 20210310
  Transmission Date: 20210420
  Serious: No
  Sender: FDA-Public Use
  Company Number: US-NEUROCRINE BIOSCIENCES INC.-2021NBI00951

PATIENT
  Age: 6 Decade
  Sex: Female

DRUGS (2)
  1. INGREZZA [Suspect]
     Active Substance: VALBENAZINE
     Indication: TARDIVE DYSKINESIA
     Route: 048
     Dates: start: 20201201
  2. INGREZZA [Suspect]
     Active Substance: VALBENAZINE
     Dosage: UNKNOWN DOSAGE REGIMEN
     Route: 048
     Dates: end: 2021

REACTIONS (1)
  - Drug ineffective [Unknown]
